FAERS Safety Report 5428580-8 (Version None)
Quarter: 2007Q3

REPORT INFORMATION
  Report Type: 
  Country: None (occurrence: None)
  Receive Date: 20070824
  Receipt Date: 20070817
  Transmission Date: 20080115
  Serious: Yes (Hospitalization)
  Sender: FDA-Public Use
  Company Number: 5931/E2B_00010943

PATIENT
  Age: 78 Year
  Sex: Male

DRUGS (5)
  1. METFORMIN HCL [Suspect]
     Indication: TYPE 2 DIABETES MELLITUS
     Dosage: 2000 MG
     Dates: start: 19950101, end: 20060125
  2. BLINDED STUDY MEDICATION [Suspect]
     Dates: start: 20060125, end: 20070713
  3. MONOPRIL [Concomitant]
  4. ZOCOR [Concomitant]
  5. ASPIRIN [Concomitant]

REACTIONS (2)
  - ARTHRALGIA [None]
  - FAILURE OF IMPLANT [None]
